FAERS Safety Report 8336438-X (Version None)
Quarter: 2012Q2

REPORT INFORMATION
  Report Type: 
  Country: None (occurrence: None)
  Receive Date: 20120504
  Receipt Date: 20120501
  Transmission Date: 20120825
  Serious: Yes (Other)
  Sender: FDA-Public Use
  Company Number: US-PFIZER INC-2012107090

PATIENT
  Sex: Female
  Weight: 90.703 kg

DRUGS (3)
  1. LYRICA [Suspect]
     Indication: PAIN IN JAW
  2. LYRICA [Suspect]
     Indication: TRIGEMINAL NEURALGIA
     Dosage: 75 MG, 2X/DAY
     Route: 048
     Dates: end: 20090101
  3. LYRICA [Suspect]
     Indication: NEUROPATHY PERIPHERAL

REACTIONS (2)
  - MULTIPLE MYELOMA [None]
  - PAIN [None]
